FAERS Safety Report 11583411 (Version 1)
Quarter: 2015Q3

REPORT INFORMATION
  Report Type: Spontaneous
  Country: US (occurrence: None)
  Receive Date: 20150930
  Receipt Date: 20150930
  Transmission Date: 20151125
  Serious: Yes (Hospitalization)
  Sender: FDA-Public Use
  Company Number: None

PATIENT
  Age: 68 Year
  Sex: Male
  Weight: 105.5 kg

DRUGS (25)
  1. ATENOLOL. [Concomitant]
     Active Substance: ATENOLOL
  2. HYDROMORPHONE [Concomitant]
     Active Substance: HYDROMORPHONE
  3. PROCTOSOL [Concomitant]
  4. TRAMADOL. [Concomitant]
     Active Substance: TRAMADOL
  5. DILAUDID [Concomitant]
     Active Substance: HYDROMORPHONE HYDROCHLORIDE
  6. HARVONI [Suspect]
     Active Substance: LEDIPASVIR\SOFOSBUVIR
     Indication: HEPATITIS C
     Dosage: 90/400MG
     Route: 048
     Dates: start: 20150117, end: 20150701
  7. METFORMIN [Concomitant]
     Active Substance: METFORMIN HYDROCHLORIDE
  8. SIMVASTATIN. [Concomitant]
     Active Substance: SIMVASTATIN
  9. VIAGRA [Concomitant]
     Active Substance: SILDENAFIL CITRATE
  10. HYDROCHLOROTHIAZIDE. [Concomitant]
     Active Substance: HYDROCHLOROTHIAZIDE
  11. GLIMEPIRIDE. [Concomitant]
     Active Substance: GLIMEPIRIDE
  12. PERCOCET [Concomitant]
     Active Substance: ACETAMINOPHEN\OXYCODONE HYDROCHLORIDE
  13. DICYCLOMINE HCL [Concomitant]
     Active Substance: DICYCLOMINE HYDROCHLORIDE
  14. PROAIR HFA [Concomitant]
     Active Substance: ALBUTEROL SULFATE
  15. DOXEPIN HCL [Concomitant]
     Active Substance: DOXEPIN HYDROCHLORIDE
  16. ZOLPIDEM [Concomitant]
     Active Substance: ZOLPIDEM\ZOLPIDEM TARTRATE
  17. PREDNISONE. [Concomitant]
     Active Substance: PREDNISONE
  18. FUROSEMIDE. [Concomitant]
     Active Substance: FUROSEMIDE
  19. SYNTHROID [Concomitant]
     Active Substance: LEVOTHYROXINE SODIUM
  20. OXYCODONE [Concomitant]
     Active Substance: OXYCODONE
  21. VICTOZA [Concomitant]
     Active Substance: LIRAGLUTIDE
  22. VITAMIN D [Concomitant]
     Active Substance: CHOLECALCIFEROL
  23. NEXIUM [Concomitant]
     Active Substance: ESOMEPRAZOLE MAGNESIUM
  24. TRAZODONE [Concomitant]
     Active Substance: TRAZODONE HYDROCHLORIDE
  25. VALSARTAN. [Concomitant]
     Active Substance: VALSARTAN

REACTIONS (1)
  - Gout [None]

NARRATIVE: CASE EVENT DATE: 20150224
